FAERS Safety Report 9011728 (Version 1)
Quarter: 2013Q1

REPORT INFORMATION
  Report Type: Spontaneous
  Country: US (occurrence: US)
  Receive Date: 20130114
  Receipt Date: 20130114
  Transmission Date: 20140127
  Serious: Yes (Other)
  Sender: FDA-Public Use
  Company Number: US-009507513-0907USA03612

PATIENT
  Age: 8 Year
  Sex: Female
  Weight: 23.59 kg

DRUGS (1)
  1. SINGULAIR [Suspect]
     Indication: SEASONAL ALLERGY
     Route: 048

REACTIONS (7)
  - Adverse event [Unknown]
  - Adenotonsillectomy [Unknown]
  - Agitation [Unknown]
  - Attention deficit/hyperactivity disorder [Unknown]
  - Learning disorder [Unknown]
  - Mood swings [Unknown]
  - Restlessness [Unknown]
